FAERS Safety Report 25403995 (Version 1)
Quarter: 2025Q2

REPORT INFORMATION
  Report Type: Spontaneous
  Country: US (occurrence: US)
  Receive Date: 20250606
  Receipt Date: 20250606
  Transmission Date: 20250716
  Serious: Yes (Other)
  Sender: CSL BEHRING
  Company Number: US-BEH-2025208312

PATIENT
  Age: 70 Year
  Sex: Female

DRUGS (1)
  1. HIZENTRA [Suspect]
     Active Substance: HUMAN IMMUNOGLOBULIN G
     Indication: Immunodeficiency common variable
     Dosage: 9 G, QW
     Route: 042

REACTIONS (4)
  - Throat tightness [Unknown]
  - Dyspnoea [Unknown]
  - Throat irritation [Unknown]
  - Off label use [Unknown]

NARRATIVE: CASE EVENT DATE: 20250522
